FAERS Safety Report 8613760 (Version 2)
Quarter: 2013Q1

REPORT INFORMATION
  Report Type: Spontaneous
  Country: US (occurrence: US)
  Receive Date: 20120614
  Receipt Date: 20130124
  Transmission Date: 20140127
  Serious: Yes (Hospitalization)
  Sender: FDA-Public Use
  Company Number: US-BAYER-2012-056799

PATIENT
  Age: 27 Year
  Sex: Female
  Weight: 94.33 kg

DRUGS (27)
  1. LAMOTRIGINE [Concomitant]
     Dosage: 25 MG, UNK
  2. RITALIN [Concomitant]
  3. ROXICET [Concomitant]
  4. NAPROSYN [Concomitant]
     Dosage: 500 MG, BID, 1-2 DAYS BEFORE MENSES
  5. OCELLA [Suspect]
  6. NAPROXEN [Concomitant]
     Dosage: 500 MG, UNK
  7. OMEPRAZOLE [Concomitant]
  8. HYDROCODONE W/ACETAMINOPHEN [Concomitant]
  9. METHYLPHENIDATE - SLOW RELEASE [Concomitant]
     Dosage: 20 MG TAB
  10. LAMICTAL [Concomitant]
     Dosage: 25 MG, BID
  11. CONCERTA [Concomitant]
     Dosage: 1 TAB DAILY
  12. PROBIOTICS [Concomitant]
     Dosage: DAILY
  13. VICODIN [Concomitant]
     Indication: PAIN
     Dosage: 5-500 MG, PRN
  14. MULTIVITAMIN [Concomitant]
     Dosage: UNK UNK, QD
  15. SENNA S [Concomitant]
  16. LIDOCAINE [Concomitant]
     Route: 061
  17. MARCAINE [Concomitant]
     Route: 061
  18. VERSED [Concomitant]
     Dosage: 2 MG, UNK
     Route: 042
  19. ANCEF [Concomitant]
     Dosage: 2 MG, UNK
     Route: 042
  20. FENTANYL [Concomitant]
     Route: 042
  21. ROCURONIUM [Concomitant]
  22. PROPOFOL [Concomitant]
  23. DEXAMETHASONE [Concomitant]
  24. ZOFRAN [Concomitant]
  25. DILAUDID [Concomitant]
     Route: 042
  26. TORADOL [Concomitant]
     Route: 042
  27. LITHIUM CARBONATE [Concomitant]
     Dosage: 300 MG, BID

REACTIONS (2)
  - Portal vein thrombosis [None]
  - Cholecystitis chronic [None]
